FAERS Safety Report 10200351 (Version 2)
Quarter: 2014Q2

REPORT INFORMATION
  Report Type: Spontaneous
  Country: ES (occurrence: ES)
  Receive Date: 20140528
  Receipt Date: 20140612
  Transmission Date: 20141212
  Serious: Yes (Other)
  Sender: FDA-Public Use
  Company Number: ES-AMGEN-ESPSP2014038599

PATIENT
  Age: 73 Year
  Sex: Male
  Weight: 75 kg

DRUGS (6)
  1. PANITUMUMAB [Suspect]
     Indication: RECTAL CANCER
     Dosage: 450 MG, Q2WK
     Route: 042
     Dates: start: 20131226
  2. ACOVIL [Concomitant]
     Indication: CONGESTIVE CARDIOMYOPATHY
     Dosage: 1.25 MG, Q12H
     Route: 048
     Dates: start: 201212
  3. PROCORALAN [Concomitant]
     Indication: CONGESTIVE CARDIOMYOPATHY
     Dosage: 2.5 MG, Q12H
     Route: 048
  4. DOXAZOSIN [Concomitant]
     Dosage: 4 MG, Q24H
     Route: 048
  5. FUROSEMIDE [Concomitant]
     Indication: CONGESTIVE CARDIOMYOPATHY
     Dosage: 40 MG, Q8H
     Route: 048
     Dates: start: 201212
  6. SINTROM [Concomitant]
     Indication: CONGESTIVE CARDIOMYOPATHY
     Dosage: UNK UNK, PRN
     Route: 048
     Dates: start: 201212

REACTIONS (11)
  - Biliary dilatation [Unknown]
  - Aspartate aminotransferase increased [Not Recovered/Not Resolved]
  - Alanine aminotransferase increased [Not Recovered/Not Resolved]
  - Gamma-glutamyltransferase increased [Not Recovered/Not Resolved]
  - Blood bilirubin increased [Not Recovered/Not Resolved]
  - Blood lactate dehydrogenase increased [Not Recovered/Not Resolved]
  - Blood alkaline phosphatase [Not Recovered/Not Resolved]
  - Hepatic enzyme increased [Not Recovered/Not Resolved]
  - Pulmonary mass [Unknown]
  - Renal cyst [Unknown]
  - Paratracheal lymphadenopathy [Unknown]
